FAERS Safety Report 7091256-8 (Version None)
Quarter: 2010Q4

REPORT INFORMATION
  Report Type: 
  Country: None (occurrence: None)
  Receive Date: 20101101
  Receipt Date: 20101019
  Transmission Date: 20110411
  Serious: Yes (Other)
  Sender: FDA-Public Use
  Company Number: ACO_02481_2010

PATIENT
  Sex: Female
  Weight: 57.6068 kg

DRUGS (9)
  1. AMPYRA [Suspect]
     Indication: GAIT DISTURBANCE
     Dosage: SEE IMAGE
     Route: 048
     Dates: start: 20100518, end: 20100528
  2. AMPYRA [Suspect]
     Indication: MULTIPLE SCLEROSIS
     Dosage: SEE IMAGE
     Route: 048
     Dates: start: 20100518, end: 20100528
  3. AMPYRA [Suspect]
     Indication: GAIT DISTURBANCE
     Dosage: SEE IMAGE
     Route: 048
     Dates: start: 20100701, end: 20100801
  4. AMPYRA [Suspect]
     Indication: MULTIPLE SCLEROSIS
     Dosage: SEE IMAGE
     Route: 048
     Dates: start: 20100701, end: 20100801
  5. AMPYRA [Suspect]
     Indication: GAIT DISTURBANCE
     Dosage: SEE IMAGE
     Route: 048
     Dates: start: 20100801
  6. AMPYRA [Suspect]
     Indication: MULTIPLE SCLEROSIS
     Dosage: SEE IMAGE
     Route: 048
     Dates: start: 20100801
  7. BACLOFEN [Concomitant]
  8. AMITRIPTYLINE HCL [Concomitant]
  9. FOSAMAX [Concomitant]

REACTIONS (7)
  - APHASIA [None]
  - CONFUSIONAL STATE [None]
  - INAPPROPRIATE SCHEDULE OF DRUG ADMINISTRATION [None]
  - MEMORY IMPAIRMENT [None]
  - MENTAL IMPAIRMENT [None]
  - NUTRITIONAL CONDITION ABNORMAL [None]
  - STRESS AT WORK [None]
